FAERS Safety Report 9223839 (Version 2)
Quarter: 2013Q2

REPORT INFORMATION
  Report Type: Spontaneous
  Country: FR (occurrence: FR)
  Receive Date: 20130411
  Receipt Date: 20130502
  Transmission Date: 20140414
  Serious: Yes (Life-Threatening, Hospitalization)
  Sender: FDA-Public Use
  Company Number: FR-AMGEN-FRASP2013024586

PATIENT
  Age: 53 Year
  Sex: Female

DRUGS (10)
  1. ENBREL [Suspect]
     Indication: ANKYLOSING SPONDYLITIS
     Dosage: UNK
  2. METHOTREXATE SODIUM [Suspect]
     Indication: ANKYLOSING SPONDYLITIS
     Dosage: 20 MG, WEEKLY
     Dates: start: 1999, end: 201301
  3. METHOTREXATE SODIUM [Suspect]
     Indication: PSORIATIC ARTHROPATHY
     Dosage: 15 MG, WEEKLY
     Dates: start: 20130114
  4. HUMIRA [Suspect]
     Indication: ANKYLOSING SPONDYLITIS
     Dosage: 40 MG, UNK
     Dates: start: 2006
  5. REMICADE [Suspect]
     Indication: ANKYLOSING SPONDYLITIS
     Dosage: 100 MG
     Dates: end: 201112
  6. CIMZIA [Suspect]
     Indication: ANKYLOSING SPONDYLITIS
     Dosage: 300 MG, EVERY 2 WEEKS
     Dates: start: 201112, end: 201212
  7. CIMZIA [Suspect]
     Dosage: 200 MG, EVERY 2 WEEKS
     Dates: end: 201212
  8. SPECIAFOLDINE [Concomitant]
     Dosage: 10 MG, WEEKLY
  9. DOLIPRANE [Concomitant]
     Dosage: 1000 MG, AS NEEDED
  10. VOLTARENE                          /00372302/ [Concomitant]
     Dosage: 75 MG, 1X/DAY

REACTIONS (2)
  - Drug ineffective [Unknown]
  - Lung neoplasm malignant [Not Recovered/Not Resolved]
